FAERS Safety Report 12061033 (Version 1)
Quarter: 2016Q1

REPORT INFORMATION
  Report Type: Spontaneous
  Country: JP (occurrence: JP)
  Receive Date: 20160210
  Receipt Date: 20160210
  Transmission Date: 20160526
  Serious: Yes (Other)
  Sender: FDA-Public Use
  Company Number: PHBS2000JP08104

PATIENT
  Age: 64 Year
  Sex: Female
  Weight: 55 kg

DRUGS (7)
  1. VOLTAREN [Suspect]
     Active Substance: DICLOFENAC SODIUM
     Route: 054
     Dates: start: 19990518, end: 19990519
  2. VOLTAREN [Suspect]
     Active Substance: DICLOFENAC SODIUM
     Dates: start: 19990518, end: 20000519
  3. MYONAL [Concomitant]
     Active Substance: EPERISONE HYDROCHLORIDE
     Route: 048
  4. MARZUREN [Concomitant]
     Route: 048
  5. HALCION [Concomitant]
     Active Substance: TRIAZOLAM
     Route: 048
  6. SERMION [Concomitant]
     Active Substance: NICERGOLINE
     Route: 048
  7. FLOMOXEF [Concomitant]
     Active Substance: FLOMOXEF
     Route: 042
     Dates: start: 20000518, end: 20000520

REACTIONS (3)
  - Hypothermia [Unknown]
  - Shock [Recovered/Resolved]
  - Hypotension [Unknown]

NARRATIVE: CASE EVENT DATE: 19990519
